FAERS Safety Report 22278065 (Version 1)
Quarter: 2023Q2

REPORT INFORMATION
  Report Type: Spontaneous
  Country: US (occurrence: US)
  Receive Date: 20230503
  Receipt Date: 20230503
  Transmission Date: 20230722
  Serious: Yes (Hospitalization, Other)
  Sender: FDA-Public Use
  Company Number: US-BRISTOL-MYERS SQUIBB COMPANY-2023-060264

PATIENT
  Age: 77 Year
  Sex: Male
  Weight: 80.74 kg

DRUGS (1)
  1. POMALYST [Suspect]
     Active Substance: POMALIDOMIDE
     Indication: Plasma cell myeloma
     Dosage: FREQUENCY: DAILY ON DAYS 1-21 OF 28 DAY CYCLE.
     Route: 048
     Dates: start: 20200621, end: 20230408

REACTIONS (3)
  - Sepsis [Recovering/Resolving]
  - Atrial fibrillation [Recovering/Resolving]
  - Infection [Recovering/Resolving]
